FAERS Safety Report 7127913-4 (Version None)
Quarter: 2010Q4

REPORT INFORMATION
  Report Type: 
  Country: None (occurrence: None)
  Receive Date: 20101130
  Receipt Date: 20101122
  Transmission Date: 20110411
  Serious: Yes (Other)
  Sender: FDA-Public Use
  Company Number: US-PFIZER INC-2010156071

PATIENT
  Sex: Female

DRUGS (2)
  1. GEODON [Suspect]
     Indication: BIPOLAR DISORDER
     Dosage: 120 MG, 1X/DAY
  2. LITHIUM [Suspect]
     Dosage: UNK

REACTIONS (2)
  - COGNITIVE DISORDER [None]
  - WEIGHT INCREASED [None]
